FAERS Safety Report 7539919-1 (Version None)
Quarter: 2011Q2

REPORT INFORMATION
  Report Type: 
  Country: None (occurrence: None)
  Receive Date: 20110610
  Receipt Date: 20110607
  Transmission Date: 20111010
  Serious: Yes (Death)
  Sender: FDA-Public Use
  Company Number: US-ROXANE LABORATORIES, INC.-2011-RO-00803RO

PATIENT
  Age: 29 Year
  Sex: Female

DRUGS (1)
  1. ROXICET [Suspect]

REACTIONS (1)
  - OVERDOSE [None]
